FAERS Safety Report 12763103 (Version 1)
Quarter: 2016Q3

REPORT INFORMATION
  Report Type: Spontaneous
  Country: FI (occurrence: FI)
  Receive Date: 20160920
  Receipt Date: 20160920
  Transmission Date: 20161109
  Serious: Yes (Other)
  Sender: FDA-Public Use
  Company Number: FI-TEVA-690762ISR

PATIENT
  Age: 14 Year
  Sex: Female

DRUGS (3)
  1. ISOTRETINOIN ACTAVIS 10 MG [Suspect]
     Active Substance: ISOTRETINOIN
     Indication: EPIDERMOLYSIS BULLOSA
  2. ISOTRETINOIN ACTAVIS 10 MG [Suspect]
     Active Substance: ISOTRETINOIN
     Indication: ICHTHYOSIS
  3. ISOTRETINOIN ACTAVIS 10 MG [Suspect]
     Active Substance: ISOTRETINOIN
     Indication: ICHTHYOSIS
     Dosage: 0.5 MG/KG/DAY
     Route: 048
     Dates: start: 20090402, end: 20160412

REACTIONS (4)
  - Osteonecrosis [Unknown]
  - Arthritis [Unknown]
  - Wrist deformity [Unknown]
  - Epiphyses premature fusion [Unknown]

NARRATIVE: CASE EVENT DATE: 20160630
